FAERS Safety Report 10302924 (Version 1)
Quarter: 2014Q3

REPORT INFORMATION
  Report Type: Spontaneous
  Country: FR (occurrence: None)
  Receive Date: 20140710
  Receipt Date: 20140710
  Transmission Date: 20150326
  Serious: Yes (Death, Life-Threatening)
  Sender: FDA-Public Use
  Company Number: FK201402624

PATIENT
  Age: 88 Year
  Sex: Female

DRUGS (7)
  1. CEFTRIAXON KABI (CEFTRIAXONE) (CEFTRIAXONE) [Suspect]
     Active Substance: CEFTRIAXONE
     Indication: LUNG DISORDER
     Dosage: NOT OTHERWISE SPECIFIED
     Route: 042
     Dates: start: 20110120, end: 20110126
  2. ATROVENT (IPRATROPIUM BROMIDE) (IPRATROPIUM BROMIDE) [Concomitant]
  3. EUPANTOL [Suspect]
     Active Substance: PANTOPRAZOLE SODIUM
     Indication: PRODUCT USED FOR UNKNOWN INDICATION
     Route: 048
     Dates: start: 20110119, end: 20110126
  4. BRICANYL (TERBUTALINE SULFATE) (TERBUTALINE SULFATE) [Concomitant]
  5. RIVOTRIL (CLONAZEPAM) (CLONAZEPAM) [Concomitant]
  6. RIFAMYCINE CHIBRET (RIFAMYCIN SODIUM) (RIFAMYCIN SODIUM) [Concomitant]
  7. KARDEGIC (ACETYLSALICYLATE) (ACETYLSALICYLATE LYSINE) [Concomitant]

REACTIONS (1)
  - Thrombocytopenia [None]

NARRATIVE: CASE EVENT DATE: 20110126
